FAERS Safety Report 7279932-5 (Version None)
Quarter: 2011Q1

REPORT INFORMATION
  Report Type: 
  Country: None (occurrence: None)
  Receive Date: 20110208
  Receipt Date: 20101216
  Transmission Date: 20110831
  Serious: Yes (Hospitalization, Other)
  Sender: FDA-Public Use
  Company Number: US-BAYER-201031416NA

PATIENT
  Sex: Female
  Weight: 59.864 kg

DRUGS (3)
  1. YAZ [Suspect]
     Indication: MUSCLE SPASMS
     Dosage: UNK UNK, QD
     Route: 048
     Dates: start: 20081201, end: 20090201
  2. YAZ [Suspect]
     Indication: DYSMENORRHOEA
  3. NAPROXEN [Concomitant]
     Indication: DYSMENORRHOEA

REACTIONS (2)
  - TACHYCARDIA [None]
  - PULMONARY EMBOLISM [None]
